FAERS Safety Report 6228908-5 (Version None)
Quarter: 2009Q2

REPORT INFORMATION
  Report Type: 
  Country: None (occurrence: None)
  Receive Date: 20090615
  Receipt Date: 20090602
  Transmission Date: 20091009
  Serious: Yes (Death, Hospitalization)
  Sender: FDA-Public Use
  Company Number: GB-ROCHE-628176

PATIENT

DRUGS (12)
  1. CEFTRIAXONE SODIUM [Suspect]
     Indication: DRUG USE FOR UNKNOWN INDICATION
     Dosage: DRUG: CEFTRIAXONE
     Route: 042
     Dates: start: 20050923, end: 20050923
  2. LANSOPRAZOLE [Suspect]
     Indication: DRUG USE FOR UNKNOWN INDICATION
     Route: 048
     Dates: start: 20050822
  3. TRIMETHOPRIM [Suspect]
     Indication: DRUG USE FOR UNKNOWN INDICATION
     Route: 048
     Dates: start: 20050824, end: 20050825
  4. ALFACALCIDOL [Concomitant]
     Route: 048
     Dates: start: 20050822
  5. AMLODIPINE [Concomitant]
     Route: 048
     Dates: start: 20050822, end: 20050825
  6. CLOTRIMAZOLE [Concomitant]
     Route: 061
     Dates: start: 20050823
  7. ACETAMINOPHEN W/ CODEINE [Concomitant]
     Route: 048
     Dates: start: 20050822
  8. FERROUS SULFATE TAB [Concomitant]
     Route: 048
     Dates: start: 20050822, end: 20050908
  9. FUROSEMIDE [Concomitant]
     Route: 048
     Dates: start: 20050822
  10. NEORECORMON [Concomitant]
     Route: 048
     Dates: start: 20050822
  11. SANDO-K [Concomitant]
     Route: 048
     Dates: start: 20050823, end: 20050827
  12. SODIUM BICARBONATE [Concomitant]
     Route: 048
     Dates: start: 20050822

REACTIONS (13)
  - CANDIDIASIS [None]
  - CARDIOPULMONARY FAILURE [None]
  - CLOSTRIDIAL INFECTION [None]
  - CONDITION AGGRAVATED [None]
  - DECUBITUS ULCER [None]
  - DEHYDRATION [None]
  - FAECES DISCOLOURED [None]
  - GENERAL PHYSICAL HEALTH DETERIORATION [None]
  - HAEMATEMESIS [None]
  - OSTEOMYELITIS [None]
  - RENAL FAILURE ACUTE [None]
  - SEPSIS [None]
  - URINARY TRACT INFECTION [None]
